FAERS Safety Report 6165997-0 (Version None)
Quarter: 2009Q2

REPORT INFORMATION
  Report Type: 
  Country: None (occurrence: None)
  Receive Date: 20090422
  Receipt Date: 20090416
  Transmission Date: 20091009
  Serious: Yes (Hospitalization)
  Sender: FDA-Public Use
  Company Number: WAES 0904USA02547

PATIENT
  Age: 62 Year
  Sex: Female

DRUGS (14)
  1. DECADRON [Suspect]
     Indication: MULTIPLE MYELOMA
     Dosage: 40 MG/WKY/PO
     Route: 048
  2. REVLIMID [Suspect]
     Indication: MULTIPLE MYELOMA
     Dosage: 25 MG/DAILY/PO
     Route: 048
     Dates: start: 20090120, end: 20090331
  3. AMOXICILLIN [Concomitant]
  4. ASPIRIN [Concomitant]
  5. THALOMID [Suspect]
     Dosage: PO
     Route: 048
  6. BIAXIN [Suspect]
     Indication: MULTIPLE MYELOMA
     Dosage: 500 MG/BID/PO
     Route: 048
  7. CLOPIDOGREL BISULFATE [Concomitant]
  8. DOCUSATE SODIUM [Concomitant]
  9. ENOXAPARIN SODIUM [Concomitant]
  10. ESOMEPRAZOLE [Concomitant]
  11. METOPROLOL TARTRATE [Concomitant]
  12. OMEPRAZOLE [Concomitant]
  13. ROSUVASTATIN CALCIUM [Concomitant]
  14. SENNA [Concomitant]

REACTIONS (4)
  - CORONARY ARTERY DISEASE [None]
  - DEEP VEIN THROMBOSIS [None]
  - MYOCARDIAL INFARCTION [None]
  - PNEUMONIA [None]
